FAERS Safety Report 25802633 (Version 1)
Quarter: 2025Q3

REPORT INFORMATION
  Report Type: Spontaneous
  Country: US (occurrence: None)
  Receive Date: 20250913
  Receipt Date: 20250913
  Transmission Date: 20251020
  Serious: No
  Sender: FDA-CTU
  Company Number: None

PATIENT
  Sex: Female

DRUGS (4)
  1. VYNDAMAX [Suspect]
     Active Substance: TAFAMIDIS
     Indication: Amyloidosis
     Route: 048
     Dates: start: 20250726
  2. ASPIRIN LOW TAB 81MG EC [Concomitant]
  3. LORAZEPAM TAB 0.5MG [Concomitant]
  4. NITROGLYCERIN SUB 0.3MG [Concomitant]

REACTIONS (2)
  - Diarrhoea [None]
  - Vision blurred [None]
